FAERS Safety Report 9719843 (Version 1)
Quarter: 2013Q4

REPORT INFORMATION
  Report Type: Report from Study
  Country: CA (occurrence: CA)
  Receive Date: 20131128
  Receipt Date: 20131128
  Transmission Date: 20140711
  Serious: Yes (Disabling)
  Sender: FDA-Public Use
  Company Number: CA-JNJFOC-20131116326

PATIENT
  Age: 52 Year
  Sex: Male
  Weight: 80 kg

DRUGS (2)
  1. REMICADE [Suspect]
     Indication: CROHN^S DISEASE
     Route: 042
     Dates: start: 20131024, end: 20131024
  2. REMICADE [Suspect]
     Indication: CROHN^S DISEASE
     Route: 042
     Dates: start: 20131009

REACTIONS (3)
  - Adverse drug reaction [Recovered/Resolved]
  - Dyspnoea [Recovered/Resolved]
  - Pruritus generalised [Recovered/Resolved]
